FAERS Safety Report 6633763-5 (Version None)
Quarter: 2010Q1

REPORT INFORMATION
  Report Type: 
  Country: None (occurrence: None)
  Receive Date: 20100315
  Receipt Date: 20100308
  Transmission Date: 20100710
  Serious: Yes (Hospitalization)
  Sender: FDA-Public Use
  Company Number: US-BIOGENIDEC-2010BI007943

PATIENT
  Sex: Female

DRUGS (1)
  1. AVONEX [Suspect]
     Indication: MULTIPLE SCLEROSIS
     Route: 030
     Dates: start: 19961101, end: 19990101

REACTIONS (5)
  - COLORECTAL CANCER METASTATIC [None]
  - CRYING [None]
  - INJECTION SITE SWELLING [None]
  - RETCHING [None]
  - VOMITING [None]
